FAERS Safety Report 8780380 (Version 1)
Quarter: 2012Q4

REPORT INFORMATION
  Report Type: Spontaneous
  Country: US (occurrence: None)
  Receive Date: 20120905
  Receipt Date: 20120905
  Transmission Date: 20130627
  Serious: Yes (Hospitalization, Disabling)
  Sender: FDA-Public Use
  Company Number: None

PATIENT

DRUGS (2)
  1. NUCYNTA IR [Suspect]
     Indication: PAIN
  2. NUCYNTA IR [Suspect]
     Indication: HIP REPLACEMENT

REACTIONS (3)
  - Memory impairment [None]
  - Communication disorder [None]
  - Mental impairment [None]
